FAERS Safety Report 5289649-4 (Version None)
Quarter: 2007Q2

REPORT INFORMATION
  Report Type: 
  Country: None (occurrence: None)
  Receive Date: 20070406
  Receipt Date: 20070329
  Transmission Date: 20071010
  Serious: Yes (Hospitalization)
  Sender: FDA-Public Use
  Company Number: JP-MERCK-0704USA00404

PATIENT

DRUGS (2)
  1. HYZAAR [Suspect]
     Indication: HYPERTENSION
     Route: 048
  2. LOWGAN [Suspect]
     Indication: HYPERTENSION
     Route: 048

REACTIONS (1)
  - INTERSTITIAL LUNG DISEASE [None]
